FAERS Safety Report 13339450 (Version 1)
Quarter: 2017Q1

REPORT INFORMATION
  Report Type: Spontaneous
  Country: SE (occurrence: SE)
  Receive Date: 20170315
  Receipt Date: 20170315
  Transmission Date: 20170428
  Serious: Yes (Hospitalization)
  Sender: FDA-Public Use
  Company Number: SE-TEVA-748695ACC

PATIENT
  Age: 96 Year
  Sex: Male

DRUGS (13)
  1. TAVEGYL [Concomitant]
     Active Substance: CLEMASTINE FUMARATE
  2. NITROMEX [Concomitant]
  3. ZOPICLON STADA [Concomitant]
  4. FELODIPIN ACTAVIS [Concomitant]
  5. LOCOID [Concomitant]
     Active Substance: HYDROCORTISONE BUTYRATE
  6. PRIMPERAN [Concomitant]
     Active Substance: METOCLOPRAMIDE HYDROCHLORIDE
  7. OXYNORM [Concomitant]
     Active Substance: OXYCODONE HYDROCHLORIDE
  8. STESOLID ACTAVIS [Suspect]
     Active Substance: DIAZEPAM
     Dosage: A TOTAL OF ^ABOUT 50 MG^
     Route: 048
     Dates: start: 20150501, end: 20150501
  9. ALLOPURINOL NORDIC DRUGS [Concomitant]
  10. FURIX [Concomitant]
     Active Substance: FUROSEMIDE
  11. TROMBYL [Concomitant]
     Active Substance: ASPIRIN
  12. ALVEDON [Concomitant]
     Active Substance: ACETAMINOPHEN
  13. FINASTERID ACTAVIS [Concomitant]
     Active Substance: FINASTERIDE

REACTIONS (3)
  - Suicide attempt [Recovered/Resolved]
  - Fatigue [Recovered/Resolved]
  - Toxicity to various agents [Recovered/Resolved]

NARRATIVE: CASE EVENT DATE: 20150501
